FAERS Safety Report 9082727 (Version 1)
Quarter: 2013Q1

REPORT INFORMATION
  Report Type: Report from Study
  Country: US (occurrence: US)
  Receive Date: 20130130
  Receipt Date: 20130130
  Transmission Date: 20140127
  Serious: No
  Sender: FDA-Public Use
  Company Number: US-ABBOTT-12P-163-0953106-00

PATIENT
  Sex: Male

DRUGS (1)
  1. HUMIRA 40 MG/ 0.8 ML PRE-FILLED SYRINGE [Suspect]
     Indication: RHEUMATOID ARTHRITIS
     Dosage: EVERY TWO WEEKS
     Dates: start: 201005

REACTIONS (5)
  - Drug dose omission [Unknown]
  - Cough [Unknown]
  - Nasopharyngitis [Unknown]
  - Pneumonia [Unknown]
  - Pulmonary mass [Unknown]
